FAERS Safety Report 8518092-7 (Version None)
Quarter: 2012Q3

REPORT INFORMATION
  Report Type: 
  Country: None (occurrence: None)
  Receive Date: 20120718
  Receipt Date: 20110926
  Transmission Date: 20120928
  Serious: No
  Sender: FDA-Public Use
  Company Number: US-BRISTOL-MYERS SQUIBB COMPANY-16068140

PATIENT
  Age: 68 Year
  Sex: Male

DRUGS (1)
  1. COUMADIN [Suspect]
     Indication: CEREBROVASCULAR ACCIDENT
     Dosage: INJ 10 YEARS AGO THEN DISCONTINUED. 10 YEARS LATER RESTRT IN THE BEGINNING OF AUG2011 WITH WARFARIN

REACTIONS (1)
  - FOLLICULITIS [None]
